FAERS Safety Report 7808539-3 (Version None)
Quarter: 2011Q4

REPORT INFORMATION
  Report Type: 
  Country: None (occurrence: None)
  Receive Date: 20111012
  Receipt Date: 20110930
  Transmission Date: 20120403
  Serious: Yes (Death, Life-Threatening, Hospitalization)
  Sender: FDA-Public Use
  Company Number: DE-RANBAXY-2011RR-46373

PATIENT
  Sex: Female
  Weight: 80 kg

DRUGS (7)
  1. NAPROXEN [Suspect]
     Indication: INTERVERTEBRAL DISC DEGENERATION
     Dosage: 1 DF, BID
     Route: 048
  2. METOHEXAL SUCC 47.5 MG RETARDTABLETTEN [Concomitant]
     Indication: HYPERTENSION
     Route: 048
  3. AMITRIPTYLINE HCL [Suspect]
     Indication: INTERVERTEBRAL DISC DEGENERATION
     Dosage: 25 MG, QD
     Route: 048
     Dates: start: 20101101, end: 20101209
  4. ACETAMINOPHEN [Suspect]
     Indication: PYREXIA
     Dosage: 1 G, QD
     Route: 048
     Dates: start: 20101201, end: 20101206
  5. FLUPIRTINE MALEATE [Suspect]
     Indication: SCIATICA
     Dosage: 400 MG, QD
     Route: 048
     Dates: start: 20101101, end: 20101206
  6. METAMIZOL-NATRIUM [Concomitant]
     Indication: PAIN
     Dosage: 500 MG, QD
     Route: 048
     Dates: start: 20101207, end: 20101209
  7. AMITRIPTYLINE HCL [Suspect]
     Indication: PAIN

REACTIONS (1)
  - ACUTE HEPATIC FAILURE [None]
